FAERS Safety Report 21740657 (Version 1)
Quarter: 2022Q4

REPORT INFORMATION
  Report Type: Spontaneous
  Country: US (occurrence: US)
  Receive Date: 20221216
  Receipt Date: 20221216
  Transmission Date: 20230113
  Serious: Yes (Hospitalization, Other)
  Sender: FDA-Public Use
  Company Number: US-ELI_LILLY_AND_COMPANY-US202212004869

PATIENT
  Age: 60 Year
  Sex: Female

DRUGS (4)
  1. GEMZAR [Suspect]
     Active Substance: GEMCITABINE HYDROCHLORIDE
     Indication: Pancreatic carcinoma
     Dosage: 1000 MG/M2, WEEKLY (1/W)
     Route: 042
     Dates: start: 20211111, end: 20220728
  2. GEMZAR [Suspect]
     Active Substance: GEMCITABINE HYDROCHLORIDE
     Dosage: 1000 MG/M2, WEEKLY (1/W)
     Route: 042
     Dates: start: 20220811
  3. ABRAXANE [Suspect]
     Active Substance: PACLITAXEL
     Indication: Pancreatic carcinoma
     Dosage: 125 MG/M2, WEEKLY (1/W)
     Route: 042
     Dates: start: 20211111, end: 20220728
  4. ABRAXANE [Suspect]
     Active Substance: PACLITAXEL
     Dosage: 125 MG/M2, WEEKLY (1/W)
     Route: 042
     Dates: start: 20220811

REACTIONS (15)
  - Failure to thrive [Recovered/Resolved]
  - Fall [Unknown]
  - Wrist fracture [Unknown]
  - Abdominal pain [Recovering/Resolving]
  - Faeces discoloured [Unknown]
  - Biliary obstruction [Unknown]
  - Melaena [Unknown]
  - Back pain [Recovering/Resolving]
  - Anaemia [Recovered/Resolved]
  - Sepsis [Unknown]
  - Escherichia bacteraemia [Unknown]
  - Fall [Unknown]
  - Weight decreased [Unknown]
  - Muscular weakness [Unknown]
  - Decreased appetite [Unknown]

NARRATIVE: CASE EVENT DATE: 20211126
